FAERS Safety Report 17546431 (Version 1)
Quarter: 2020Q1

REPORT INFORMATION
  Report Type: Spontaneous
  Country: US (occurrence: US)
  Receive Date: 20200316
  Receipt Date: 20200316
  Transmission Date: 20200409
  Serious: Yes (Other)
  Sender: FDA-Public Use
  Company Number: None

PATIENT
  Age: 66 Year
  Sex: Male
  Weight: 85.5 kg

DRUGS (9)
  1. BABY ASPIRIN [Concomitant]
     Active Substance: ASPIRIN
  2. FINASTERIDE. [Concomitant]
     Active Substance: FINASTERIDE
  3. VITAMINS B [Concomitant]
  4. BIOTIN [Concomitant]
     Active Substance: BIOTIN
  5. CHOLESTYRAMINE. [Concomitant]
     Active Substance: CHOLESTYRAMINE
  6. VITAMINS C [Concomitant]
  7. SYNTHROID [Concomitant]
     Active Substance: LEVOTHYROXINE SODIUM
  8. BENZONATATE 100 MG CAPSULE [Suspect]
     Active Substance: BENZONATATE
     Indication: COUGH
     Dosage: ?          QUANTITY:1 CAPSULE(S);?
     Route: 048
     Dates: start: 20200315, end: 20200315
  9. ALFUZOSIN [Concomitant]
     Active Substance: ALFUZOSIN

REACTIONS (3)
  - Pharyngeal hypoaesthesia [None]
  - Dyspnoea [None]
  - Cough [None]

NARRATIVE: CASE EVENT DATE: 20200315
